FAERS Safety Report 8200884-5 (Version None)
Quarter: 2012Q1

REPORT INFORMATION
  Report Type: 
  Country: None (occurrence: None)
  Receive Date: 20120312
  Receipt Date: 20110512
  Transmission Date: 20120608
  Serious: No
  Sender: FDA-Public Use
  Company Number: US-ABBOTT-11P-163-0725074-00

PATIENT
  Age: 9 Year
  Sex: Female

DRUGS (4)
  1. LUPRON DEPOT [Suspect]
     Dates: start: 20101229
  2. LUPRON DEPOT [Suspect]
     Dates: start: 20110308
  3. LUPRON DEPOT [Suspect]
     Indication: PRODUCT USED FOR UNKNOWN INDICATION
     Dates: start: 20101108
  4. LUPRON DEPOT [Suspect]
     Dates: start: 20110228

REACTIONS (2)
  - MEDICATION ERROR [None]
  - INCORRECT DOSE ADMINISTERED [None]
